FAERS Safety Report 15470135 (Version 3)
Quarter: 2018Q4

REPORT INFORMATION
  Report Type: Spontaneous
  Country: CA (occurrence: CA)
  Receive Date: 20181005
  Receipt Date: 20181031
  Transmission Date: 20190205
  Serious: Yes (Other)
  Sender: FDA-Public Use
  Company Number: CA-MYLANLABS-2018M1073194

PATIENT
  Age: 17 Year
  Sex: Female

DRUGS (18)
  1. PRIMIDONE. [Concomitant]
     Active Substance: PRIMIDONE
     Indication: GENERALISED TONIC-CLONIC SEIZURE
     Dosage: UNK
     Route: 065
  2. N-ACETYLCYSTEINE [Concomitant]
     Active Substance: ACETYLCYSTEINE
     Indication: PRODUCT USED FOR UNKNOWN INDICATION
     Dosage: 30 ML, UNK
     Route: 065
  3. CARBAMAZEPINE. [Concomitant]
     Active Substance: CARBAMAZEPINE
     Indication: LAFORA^S MYOCLONIC EPILEPSY
  4. ZONISAMIDE. [Concomitant]
     Active Substance: ZONISAMIDE
     Indication: LAFORA^S MYOCLONIC EPILEPSY
     Dosage: 3 MG, QD
     Route: 065
  5. VALPROIC ACID. [Suspect]
     Active Substance: VALPROIC ACID
     Indication: LAFORA^S MYOCLONIC EPILEPSY
     Dosage: 1500 MG, QD
     Route: 065
  6. PHENOBARBITAL. [Suspect]
     Active Substance: PHENOBARBITAL
     Indication: GENERALISED TONIC-CLONIC SEIZURE
     Dosage: 100 MG, QD
     Route: 065
  7. PHENOBARBITAL. [Suspect]
     Active Substance: PHENOBARBITAL
     Indication: LAFORA^S MYOCLONIC EPILEPSY
     Dosage: 25 MG, QD
     Route: 065
  8. VALIUM [Concomitant]
     Active Substance: DIAZEPAM
     Indication: GENERALISED TONIC-CLONIC SEIZURE
     Dosage: 30 MG, QD
     Route: 065
  9. LEVETIRACETAM. [Concomitant]
     Active Substance: LEVETIRACETAM
     Indication: LAFORA^S MYOCLONIC EPILEPSY
     Dosage: 2000 MG, UNK
     Route: 065
  10. VALPROIC ACID. [Suspect]
     Active Substance: VALPROIC ACID
     Indication: GENERALISED TONIC-CLONIC SEIZURE
     Dosage: UNK
     Route: 065
  11. CLONAZEPAM. [Concomitant]
     Active Substance: CLONAZEPAM
     Indication: LAFORA^S MYOCLONIC EPILEPSY
     Dosage: 7.5 MG, UNK
     Route: 065
  12. PHENOBARBITAL. [Suspect]
     Active Substance: PHENOBARBITAL
     Dosage: 50 MG, QD
     Route: 065
  13. VALIUM [Concomitant]
     Active Substance: DIAZEPAM
     Indication: LAFORA^S MYOCLONIC EPILEPSY
     Dosage: UNK
  14. CARBAMAZEPINE. [Concomitant]
     Active Substance: CARBAMAZEPINE
     Indication: GENERALISED TONIC-CLONIC SEIZURE
     Dosage: UNK
     Route: 065
  15. CLONAZEPAM. [Concomitant]
     Active Substance: CLONAZEPAM
     Indication: GENERALISED TONIC-CLONIC SEIZURE
     Dosage: UNK
     Route: 065
  16. PERAMPANEL [Concomitant]
     Active Substance: PERAMPANEL
     Indication: LAFORA^S MYOCLONIC EPILEPSY
     Dosage: 4 MG, QD (AT NIGHT, STARTED AT THE AGE OF 38 YEARS)
     Route: 065
  17. PHENOBARBITAL. [Suspect]
     Active Substance: PHENOBARBITAL
     Dosage: 165 MG AT 38 YEARS OF HER AGE
     Route: 065
  18. PRIMIDONE. [Concomitant]
     Active Substance: PRIMIDONE
     Indication: LAFORA^S MYOCLONIC EPILEPSY

REACTIONS (8)
  - Osteoporosis [Unknown]
  - Salivary hypersecretion [Unknown]
  - Ataxia [Unknown]
  - Gait inability [Unknown]
  - Dementia [Unknown]
  - Dysarthria [Unknown]
  - Gait disturbance [Unknown]
  - Drug withdrawal syndrome [Unknown]
